FAERS Safety Report 25220703 (Version 1)
Quarter: 2025Q2

REPORT INFORMATION
  Report Type: Other
  Country: CN (occurrence: None)
  Receive Date: 20250421
  Receipt Date: 20250421
  Transmission Date: 20250716
  Serious: Yes (Other)
  Sender: INCYTE
  Company Number: CN-002147023-NVSC2025CN060638

PATIENT
  Age: 55 Year

DRUGS (1)
  1. RUXOLITINIB [Suspect]
     Active Substance: RUXOLITINIB
     Indication: Targeted cancer therapy
     Dosage: 5 MG, BID

REACTIONS (1)
  - Neutrophil count decreased [Unknown]
